FAERS Safety Report 7321188-9 (Version None)
Quarter: 2011Q1

REPORT INFORMATION
  Report Type: 
  Country: None (occurrence: None)
  Receive Date: 20110228
  Receipt Date: 20110222
  Transmission Date: 20110831
  Serious: Yes (Hospitalization, Other)
  Sender: FDA-Public Use
  Company Number: US-PFIZER INC-2010160624

PATIENT
  Sex: Male

DRUGS (2)
  1. CHANTIX [Suspect]
     Indication: SMOKING CESSATION THERAPY
     Dosage: 28 DAY SUPPLY WITH 2 REFILLS
     Dates: start: 20080901, end: 20081001
  2. HYDROCODONE [Concomitant]
     Indication: ANALGESIC THERAPY
     Dosage: UNK
     Dates: start: 20050101, end: 20110101

REACTIONS (10)
  - ROAD TRAFFIC ACCIDENT [None]
  - DEAFNESS UNILATERAL [None]
  - COGNITIVE DISORDER [None]
  - AGGRESSION [None]
  - LOSS OF CONSCIOUSNESS [None]
  - SKULL FRACTURE [None]
  - OPEN WOUND [None]
  - DEPRESSION [None]
  - BLINDNESS [None]
  - ANXIETY [None]
